FAERS Safety Report 17973234 (Version 1)
Quarter: 2020Q3

REPORT INFORMATION
  Report Type: Spontaneous
  Country: US (occurrence: US)
  Receive Date: 20200701
  Receipt Date: 20200701
  Transmission Date: 20201103
  Serious: Yes (Hospitalization)
  Sender: FDA-Public Use
  Company Number: None

PATIENT
  Age: 64 Year
  Sex: Male

DRUGS (23)
  1. MOMETASONE SOL [Concomitant]
  2. VALSARTAN. [Concomitant]
     Active Substance: VALSARTAN
  3. FLOMAX [Concomitant]
     Active Substance: TAMSULOSIN HYDROCHLORIDE
  4. LEVITRA [Concomitant]
     Active Substance: VARDENAFIL HYDROCHLORIDE
  5. VECTICAL [Concomitant]
     Active Substance: CALCITRIOL
  6. AZITHROMYCIN ANHYDROUS. [Concomitant]
     Active Substance: AZITHROMYCIN ANHYDROUS
  7. C?PHEN DM SYPR [Concomitant]
  8. FLUOCINONIDE OIN [Concomitant]
  9. PENICILLIN [Concomitant]
     Active Substance: PENICILLIN
  10. TESTOST CYP [Concomitant]
     Active Substance: TESTOSTERONE CYPIONATE
  11. ENBREL [Suspect]
     Active Substance: ETANERCEPT
     Indication: PSORIASIS
     Route: 058
     Dates: start: 20171020
  12. AMOX [Concomitant]
     Active Substance: UNSPECIFIED INGREDIENT
  13. ASPIRIN. [Concomitant]
     Active Substance: ASPIRIN
  14. ELIQUIS [Concomitant]
     Active Substance: APIXABAN
  15. HYDROCO [Concomitant]
  16. LANTUS SOLOS [Concomitant]
  17. CLOBEX [Concomitant]
     Active Substance: CLOBETASOL PROPIONATE
  18. TACLONEX OIN [Concomitant]
  19. TRICOR [Concomitant]
     Active Substance: FENOFIBRATE
  20. ALBUTEROL. [Concomitant]
     Active Substance: ALBUTEROL
  21. LABETALOL [Concomitant]
     Active Substance: LABETALOL\LABETALOL HYDROCHLORIDE
  22. RAMIPRIL. [Concomitant]
     Active Substance: RAMIPRIL
  23. TAMSULOSIN [Concomitant]
     Active Substance: TAMSULOSIN

REACTIONS (2)
  - Unevaluable event [None]
  - Therapy cessation [None]

NARRATIVE: CASE EVENT DATE: 20200616
